FAERS Safety Report 9329891 (Version 1)
Quarter: 2013Q2

REPORT INFORMATION
  Report Type: Spontaneous
  Country: US (occurrence: US)
  Receive Date: 20130604
  Receipt Date: 20130604
  Transmission Date: 20140414
  Serious: No
  Sender: FDA-Public Use
  Company Number: US-ASTRAZENECA-2013SE36592

PATIENT
  Age: 40 Year
  Sex: Female
  Weight: 97.5 kg

DRUGS (5)
  1. SEROQUEL [Suspect]
     Dosage: DAILY
     Route: 048
     Dates: start: 2012
  2. SEROQUEL [Suspect]
     Dosage: DAILY
     Route: 048
     Dates: start: 2012
  3. SEROQUEL [Suspect]
     Route: 048
     Dates: start: 201304
  4. SEROQUEL [Suspect]
     Route: 048
     Dates: start: 201304
  5. FLUOXTINE [Concomitant]
     Route: 048
     Dates: start: 2012

REACTIONS (10)
  - Depression [Unknown]
  - Fear [Unknown]
  - Feeling abnormal [Unknown]
  - Anxiety [Unknown]
  - Diabetes mellitus [Unknown]
  - Feeling of despair [Unknown]
  - Anger [Unknown]
  - Therapeutic response unexpected [Unknown]
  - Sedation [Unknown]
  - Intentional drug misuse [Unknown]
